FAERS Safety Report 15866153 (Version 9)
Quarter: 2019Q3

REPORT INFORMATION
  Report Type: Report from Study
  Country: DE (occurrence: DE)
  Receive Date: 20190125
  Receipt Date: 20190919
  Transmission Date: 20191004
  Serious: Yes (Hospitalization, Other)
  Sender: FDA-Public Use
  Company Number: DE-ROCHE-2249873

PATIENT
  Age: 46 Year
  Sex: Female

DRUGS (10)
  1. OCREVUS [Suspect]
     Active Substance: OCRELIZUMAB
     Route: 042
     Dates: start: 20190429
  2. RAMILICH [Concomitant]
     Active Substance: RAMIPRIL
     Route: 065
  3. L-THYROXIN [LEVOTHYROXINE] [Concomitant]
     Active Substance: LEVOTHYROXINE SODIUM
     Route: 065
     Dates: end: 201907
  4. OCREVUS [Suspect]
     Active Substance: OCRELIZUMAB
     Route: 042
     Dates: start: 20181015
  5. VALETTE [Concomitant]
     Active Substance: DIENOGEST\ETHINYL ESTRADIOL
     Indication: CONTRACEPTION
  6. OCREVUS [Suspect]
     Active Substance: OCRELIZUMAB
     Indication: RELAPSING-REMITTING MULTIPLE SCLEROSIS
     Route: 042
     Dates: start: 20181001
  7. CLINDAMYCIN. [Suspect]
     Active Substance: CLINDAMYCIN
     Indication: SKIN BACTERIAL INFECTION
     Dosage: FOR 10 DAYS
     Route: 048
  8. RAMILICH [Concomitant]
     Active Substance: RAMIPRIL
     Route: 065
  9. RAMILICH [Concomitant]
     Active Substance: RAMIPRIL
     Route: 065
  10. VIGANTOLETTEN [Concomitant]
     Active Substance: CHOLECALCIFEROL
     Route: 065

REACTIONS (13)
  - Haematoma [Not Recovered/Not Resolved]
  - Rash [Recovering/Resolving]
  - Leiomyoma [Not Recovered/Not Resolved]
  - Skin bacterial infection [Recovered/Resolved]
  - Oral fungal infection [Unknown]
  - Vulvovaginal mycotic infection [Recovered/Resolved]
  - Abscess [Recovering/Resolving]
  - Vomiting [Recovered/Resolved]
  - Body temperature increased [Recovered/Resolved]
  - Nausea [Recovered/Resolved]
  - Thrombosis [Not Recovered/Not Resolved]
  - Dyspepsia [Recovered/Resolved]
  - Haematoma [Unknown]

NARRATIVE: CASE EVENT DATE: 20181001
